FAERS Safety Report 13516354 (Version 1)
Quarter: 2017Q2

REPORT INFORMATION
  Report Type: Report from Study
  Country: US (occurrence: US)
  Receive Date: 20170505
  Receipt Date: 20170505
  Transmission Date: 20170830
  Serious: Yes (Death, Other)
  Sender: FDA-Public Use
  Company Number: US-GILEAD-2017-0271082

PATIENT
  Age: 70 Year
  Sex: Female

DRUGS (8)
  1. AMBRISENTAN [Suspect]
     Active Substance: AMBRISENTAN
     Indication: PULMONARY ARTERIAL HYPERTENSION
     Dosage: 10 MG, QD
     Route: 065
     Dates: start: 20150408
  2. SERTRALINE [Concomitant]
     Active Substance: SERTRALINE HYDROCHLORIDE
  3. VENTOLIN [Concomitant]
     Active Substance: ALBUTEROL SULFATE
  4. PROCARDIA                          /05503602/ [Concomitant]
  5. LOSARTAN. [Concomitant]
     Active Substance: LOSARTAN
  6. NIFEDIPINE. [Concomitant]
     Active Substance: NIFEDIPINE
  7. PREDNISONE. [Concomitant]
     Active Substance: PREDNISONE
  8. ALBUTEROL                          /00139501/ [Concomitant]
     Active Substance: ALBUTEROL

REACTIONS (2)
  - Pulmonary fibrosis [Fatal]
  - Sarcoidosis [Fatal]
